FAERS Safety Report 13029463 (Version 1)
Quarter: 2016Q4

REPORT INFORMATION
  Report Type: Spontaneous
  Country: GR (occurrence: GR)
  Receive Date: 20161215
  Receipt Date: 20161215
  Transmission Date: 20170207
  Serious: Yes (Hospitalization, Other)
  Sender: FDA-Public Use
  Company Number: GR-ACCORD-046483

PATIENT
  Age: 51 Year
  Sex: Male

DRUGS (2)
  1. AMLODIPINE [Suspect]
     Active Substance: AMLODIPINE BESYLATE
     Indication: HYPERTENSION
  2. SILDENAFIL/SILDENAFIL CITRATE [Interacting]
     Active Substance: SILDENAFIL CITRATE
     Indication: ERECTILE DYSFUNCTION

REACTIONS (3)
  - Epistaxis [Recovered/Resolved]
  - Drug interaction [Unknown]
  - Substance use [Recovered/Resolved]
